FAERS Safety Report 5959058-0 (Version None)
Quarter: 2008Q4

REPORT INFORMATION
  Report Type: 
  Country: None (occurrence: None)
  Receive Date: 20081120
  Receipt Date: 20081117
  Transmission Date: 20090506
  Serious: Yes (Hospitalization, Other)
  Sender: FDA-Public Use
  Company Number: IE-WYE-G02154208

PATIENT
  Age: 21 Year
  Sex: Male
  Weight: 59.5 kg

DRUGS (2)
  1. TAZOCIN [Suspect]
     Indication: INFECTION
     Route: 042
     Dates: start: 20080730, end: 20080812
  2. CIPROFLOXACIN [Concomitant]
     Indication: INFECTION
     Route: 042
     Dates: start: 20080730

REACTIONS (4)
  - HOT FLUSH [None]
  - NEUTROPENIA [None]
  - PRODUCT QUALITY ISSUE [None]
  - PYREXIA [None]
